FAERS Safety Report 5993680-0 (Version None)
Quarter: 2008Q4

REPORT INFORMATION
  Report Type: 
  Country: None (occurrence: None)
  Receive Date: 20081204
  Receipt Date: 20070306
  Transmission Date: 20090506
  Serious: Yes (Hospitalization, Other)
  Sender: FDA-Public Use
  Company Number: THYM-11346

PATIENT
  Age: 59 Year
  Sex: Male
  Weight: 100 kg

DRUGS (10)
  1. THYMOGLOBULIN [Suspect]
     Indication: COMPLICATIONS OF TRANSPLANTED KIDNEY
     Dosage: 150 MG, ONCE, INTRAVENOUS ; 100 MG, QD, INTRAVENOUS
     Route: 042
     Dates: start: 20070306, end: 20070306
  2. THYMOGLOBULIN [Suspect]
     Indication: COMPLICATIONS OF TRANSPLANTED KIDNEY
     Dosage: 150 MG, ONCE, INTRAVENOUS ; 100 MG, QD, INTRAVENOUS
     Route: 042
     Dates: start: 20070307, end: 20070310
  3. ACETAMINOPHEN [Concomitant]
  4. BENADRYL [Concomitant]
  5. SOLU-CORTEF [Concomitant]
  6. CELLCEPT [Concomitant]
  7. PREDNISONE [Concomitant]
  8. PEPCID [Concomitant]
  9. KLONAPIN [Concomitant]
  10. DEPAKOTE (VALPORATE SEMISODIUM) [Concomitant]

REACTIONS (3)
  - CHILLS [None]
  - HYPERTENSION [None]
  - PYREXIA [None]
